FAERS Safety Report 6747612-8 (Version None)
Quarter: 2010Q2

REPORT INFORMATION
  Report Type: 
  Country: None (occurrence: None)
  Receive Date: 20100528
  Receipt Date: 20100517
  Transmission Date: 20101027
  Serious: Yes (Hospitalization)
  Sender: FDA-Public Use
  Company Number: PHHY2010US32226

PATIENT
  Sex: Male

DRUGS (10)
  1. AFINITOR [Suspect]
     Dosage: UNK
  2. GENERLAC [Suspect]
     Indication: CONSTIPATION
     Dosage: UNK
  3. MECLIZINE [Concomitant]
     Dosage: 25 MG, QD
  4. NIASPAN [Concomitant]
     Dosage: 1000 MG
  5. HYDROCHLOROTHIAZIDE [Concomitant]
     Dosage: 25 MG, QD
  6. PREVACID [Concomitant]
     Dosage: 40 MG, QD
  7. FOLIC ACID [Concomitant]
     Dosage: 1 MG
  8. UROXATRAL [Concomitant]
     Dosage: 1 MG, QD
  9. ADVAIR DISKUS 100/50 [Concomitant]
     Dosage: TWICE A DAILY
  10. SPIRIVA [Concomitant]
     Dosage: ONCE DAILY

REACTIONS (9)
  - ABDOMINAL PAIN [None]
  - ASTHENIA [None]
  - CONSTIPATION [None]
  - DYSSTASIA [None]
  - EPISTAXIS [None]
  - FATIGUE [None]
  - GROIN PAIN [None]
  - MUSCLE SPASMS [None]
  - NASAL CONGESTION [None]
